FAERS Safety Report 6233169-7 (Version None)
Quarter: 2009Q2

REPORT INFORMATION
  Report Type: 
  Country: None (occurrence: None)
  Receive Date: 20090612
  Receipt Date: 20090602
  Transmission Date: 20091009
  Serious: Yes (Other)
  Sender: FDA-Public Use
  Company Number: 236158K09USA

PATIENT
  Age: 49 Year
  Sex: Female

DRUGS (1)
  1. REBIF [Suspect]
     Indication: MULTIPLE SCLEROSIS
     Dosage: 8.8 MCG, 3 IN 7 DAYS, SUBCUTANEOUS
     Route: 058
     Dates: start: 20090519

REACTIONS (2)
  - FALL [None]
  - TRANSIENT ISCHAEMIC ATTACK [None]
